FAERS Safety Report 22769550 (Version 2)
Quarter: 2023Q4

REPORT INFORMATION
  Report Type: Spontaneous
  Country: US (occurrence: US)
  Receive Date: 20230801
  Receipt Date: 20231215
  Transmission Date: 20240109
  Serious: Yes (Hospitalization)
  Sender: FDA-Public Use
  Company Number: US-STRIDES ARCOLAB LIMITED-2023SP000118

PATIENT
  Age: 64 Year
  Sex: Male

DRUGS (6)
  1. MYCOPHENOLATE MOFETIL [Suspect]
     Active Substance: MYCOPHENOLATE MOFETIL
     Indication: Heart transplant
     Dosage: 1 MILLIGRAM, BID
     Route: 065
  2. MYCOPHENOLATE MOFETIL [Suspect]
     Active Substance: MYCOPHENOLATE MOFETIL
     Indication: Immunosuppressant drug therapy
     Dosage: 500 MILLIGRAM, BID
     Route: 065
  3. MYCOPHENOLATE MOFETIL [Suspect]
     Active Substance: MYCOPHENOLATE MOFETIL
     Dosage: 250 MILLIGRAM, BID
     Route: 065
  4. TACROLIMUS [Suspect]
     Active Substance: TACROLIMUS
     Indication: Immunosuppressant drug therapy
     Dosage: 7.5 MILLIGRAM, BID (TITRATED DOWN TO 3MG DURING THE DAY AND 3.5MG AT NIGHT)
     Route: 065
  5. TACROLIMUS [Suspect]
     Active Substance: TACROLIMUS
     Indication: Heart transplant
     Dosage: UNK (3MG DURING THE DAY AND 3.5MG AT NIGHT)
     Route: 065
  6. OFLOXACIN [Concomitant]
     Active Substance: OFLOXACIN
     Indication: Evidence based treatment
     Dosage: UNK
     Route: 065

REACTIONS (6)
  - Herpes zoster oticus [Not Recovered/Not Resolved]
  - Otitis externa [Recovered/Resolved]
  - Gradenigo^s syndrome [Unknown]
  - Varicella zoster virus infection [Recovered/Resolved]
  - Encephalitis [Recovered/Resolved]
  - Staphylococcal infection [Recovered/Resolved]
